FAERS Safety Report 6407381-8 (Version None)
Quarter: 2009Q4

REPORT INFORMATION
  Report Type: 
  Country: None (occurrence: None)
  Receive Date: 20091020
  Receipt Date: 20091007
  Transmission Date: 20100525
  Serious: Yes (Other)
  Sender: FDA-Public Use
  Company Number: US-JNJCH-2009026875

PATIENT
  Age: 19 Year
  Sex: Female

DRUGS (2)
  1. BENADRYL [Suspect]
     Indication: SUICIDE ATTEMPT
     Dosage: TEXT:ABOUT 35 PILLS UNSPECIFIED
     Route: 048
  2. ACETAMINOPHEN [Suspect]
     Indication: SUICIDE ATTEMPT
     Dosage: TEXT:UNSPECIFIED
     Route: 048

REACTIONS (11)
  - ABASIA [None]
  - AGGRESSION [None]
  - APHASIA [None]
  - CONFUSIONAL STATE [None]
  - DRUG EXPOSURE DURING PREGNANCY [None]
  - HEART RATE INCREASED [None]
  - OVERDOSE [None]
  - PREMATURE LABOUR [None]
  - PUPIL FIXED [None]
  - UNRESPONSIVE TO STIMULI [None]
  - VOMITING [None]
